FAERS Safety Report 19464542 (Version 3)
Quarter: 2021Q2

REPORT INFORMATION
  Report Type: Spontaneous
  Country: GB (occurrence: GB)
  Receive Date: 20210626
  Receipt Date: 20210630
  Transmission Date: 20210717
  Serious: Yes (Death, Life-Threatening, Other)
  Sender: FDA-Public Use
  Company Number: GB-B.I. PHARMACEUTICALS,INC./RIDGEFIELD-2021-BI-111397

PATIENT
  Age: 27 Year
  Sex: Male

DRUGS (1)
  1. PRADAXA [Suspect]
     Active Substance: DABIGATRAN ETEXILATE MESYLATE
     Indication: CEREBRAL VENOUS SINUS THROMBOSIS

REACTIONS (3)
  - Death [Fatal]
  - Cerebral haemorrhage [Unknown]
  - Off label use [Unknown]

NARRATIVE: CASE EVENT DATE: 202104
